FAERS Safety Report 11911304 (Version 2)
Quarter: 2016Q1

REPORT INFORMATION
  Report Type: Report from Study
  Country: US (occurrence: US)
  Receive Date: 20160112
  Receipt Date: 20160126
  Transmission Date: 20160526
  Serious: Yes (Hospitalization)
  Sender: FDA-Public Use
  Company Number: US-TEVA-623960USA

PATIENT
  Age: 43 Year
  Sex: Female

DRUGS (6)
  1. ABT-888 (VELIPARIB) (BLINDED) [Suspect]
     Active Substance: VELIPARIB
     Indication: TRIPLE NEGATIVE BREAST CANCER
     Route: 048
     Dates: start: 20150706, end: 20150927
  2. DOXORUBICIN [Suspect]
     Active Substance: DOXORUBICIN
     Indication: TRIPLE NEGATIVE BREAST CANCER
     Dosage: CHEMOTHERAPY SEGMENT 2 (60 MG/M2, 1 IN 2 WK)
     Route: 042
     Dates: start: 20150928
  3. CYCLOPHOSPHAMIDE. [Suspect]
     Active Substance: CYCLOPHOSPHAMIDE
     Indication: TRIPLE NEGATIVE BREAST CANCER
     Dosage: CHEMOTHERAPY SEGMENT 2 (600 MG/M2, 1 IN 2 WK)
     Route: 042
     Dates: start: 20150928
  4. PACLITAXEL. [Suspect]
     Active Substance: PACLITAXEL
     Indication: TRIPLE NEGATIVE BREAST CANCER
     Dosage: DAY 1 OF 12 WEEKLY CYCLES (80 MG/M2, 1 IN 1 WK)
     Route: 042
     Dates: start: 20150706, end: 20150921
  5. CARBOPLATIN (BLINDED) [Suspect]
     Active Substance: CARBOPLATIN
     Indication: TRIPLE NEGATIVE BREAST CANCER
     Dosage: AUC 6: ON DAY 1 OF FOUR 21-DAY CYCLES (1 IN 3 WK)
     Route: 042
     Dates: start: 20150706, end: 20150908
  6. ACETAMINOPHEN. [Concomitant]
     Active Substance: ACETAMINOPHEN
     Indication: HEADACHE
     Route: 048
     Dates: start: 20150720

REACTIONS (1)
  - Febrile neutropenia [Recovered/Resolved]

NARRATIVE: CASE EVENT DATE: 20151114
